FAERS Safety Report 9631544 (Version 1)
Quarter: 2013Q4

REPORT INFORMATION
  Report Type: Spontaneous
  Country: US (occurrence: None)
  Receive Date: 20131017
  Receipt Date: 20131017
  Transmission Date: 20140711
  Serious: Yes (Hospitalization)
  Sender: FDA-Public Use
  Company Number: None

PATIENT
  Age: 79 Year
  Sex: Male
  Weight: 79.6 kg

DRUGS (2)
  1. SPIRONOLACTONE [Suspect]
     Indication: HYPERTENSION
     Route: 048
     Dates: start: 20130506, end: 20131012
  2. SPIRONOLACTONE [Suspect]
     Indication: OEDEMA
     Route: 048
     Dates: start: 20130506, end: 20131012

REACTIONS (1)
  - Hypotension [None]
